FAERS Safety Report 9420748 (Version 1)
Quarter: 2013Q3

REPORT INFORMATION
  Report Type: Spontaneous
  Country: US (occurrence: US)
  Receive Date: 20130725
  Receipt Date: 20130725
  Transmission Date: 20140515
  Serious: No
  Sender: FDA-Public Use
  Company Number: US-ABBOTT-13P-163-1098757-00

PATIENT
  Age: 66 Year
  Sex: Female
  Weight: 61.29 kg

DRUGS (6)
  1. SYNTHROID [Suspect]
     Indication: THYROID DISORDER
     Dates: start: 1980
  2. LEVOTHYROXINE [Suspect]
     Indication: THYROID DISORDER
     Dates: start: 2000
  3. LEVOXYL [Suspect]
     Dates: start: 1970, end: 201304
  4. LEVOXYL [Suspect]
  5. LEVOTHYROXINE [Suspect]
  6. CHLORTHALIDONE [Concomitant]
     Indication: HYPERTENSION

REACTIONS (5)
  - Feeling abnormal [Unknown]
  - Blood thyroid stimulating hormone increased [Unknown]
  - Blood thyroid stimulating hormone decreased [Unknown]
  - Night sweats [Unknown]
  - Malaise [Unknown]
